FAERS Safety Report 8986624 (Version 3)
Quarter: 2013Q1

REPORT INFORMATION
  Report Type: Spontaneous
  Country: BR (occurrence: BR)
  Receive Date: 20121227
  Receipt Date: 20130227
  Transmission Date: 20140127
  Serious: Yes (Hospitalization)
  Sender: FDA-Public Use
  Company Number: BR-ELI_LILLY_AND_COMPANY-BR201212005958

PATIENT
  Age: 60 Year
  Sex: Female

DRUGS (10)
  1. FORTEO [Suspect]
     Indication: OSTEOPOROSIS
     Dosage: 20 UG, QD
     Route: 058
     Dates: start: 201210
  2. FORTEO [Suspect]
     Dosage: 20 UG, QD
     Route: 058
  3. CALCITROL [Concomitant]
     Dosage: UNK, QD
     Route: 065
  4. DEPURAN                            /00618701/ [Concomitant]
     Dosage: 6 GTT, QD
     Route: 065
  5. CARBAMAZEPINA [Concomitant]
     Dosage: 200 MG, QID
     Route: 065
  6. LEXOTAN [Concomitant]
     Dosage: UNK, UNKNOWN
     Route: 065
  7. GARDENAL [Concomitant]
     Dosage: UNK, UNKNOWN
     Route: 065
  8. ATENOLOL [Concomitant]
     Indication: BLOOD PRESSURE
     Dosage: UNK, UNKNOWN
     Route: 065
  9. ENALAPRIL [Concomitant]
     Indication: BLOOD PRESSURE
     Dosage: UNK, UNKNOWN
     Route: 065
  10. ISOSORBIDE DINITRATE [Concomitant]
     Indication: BLOOD PRESSURE
     Dosage: UNK, UNKNOWN
     Route: 065

REACTIONS (5)
  - Malaise [Unknown]
  - Pain [Unknown]
  - Feeling abnormal [Unknown]
  - Headache [Unknown]
  - Dizziness [Unknown]
